FAERS Safety Report 10085930 (Version 1)
Quarter: 2014Q2

REPORT INFORMATION
  Report Type: Spontaneous
  Country: US (occurrence: US)
  Receive Date: 20140418
  Receipt Date: 20140418
  Transmission Date: 20141212
  Serious: Yes (Hospitalization)
  Sender: FDA-Public Use
  Company Number: US-NOVOPROD-406027

PATIENT
  Age: 50 Year
  Sex: Male
  Weight: 116.1 kg

DRUGS (1)
  1. LEVEMIR [Suspect]
     Indication: TYPE 2 DIABETES MELLITUS
     Dosage: 40-50 UNITS DAILY
     Route: 058
     Dates: start: 2001, end: 2007

REACTIONS (2)
  - Diabetic hyperglycaemic coma [Recovered/Resolved]
  - Injection site mass [Recovered/Resolved]
